FAERS Safety Report 6801690-6 (Version None)
Quarter: 2010Q2

REPORT INFORMATION
  Report Type: 
  Country: None (occurrence: None)
  Receive Date: 20100629
  Receipt Date: 20100615
  Transmission Date: 20101027
  Serious: Yes (Hospitalization)
  Sender: FDA-Public Use
  Company Number: FR-ASTRAZENECA-2010SE28487

PATIENT
  Age: 18134 Day
  Sex: Female

DRUGS (24)
  1. NAROPIN [Suspect]
     Route: 050
     Dates: start: 20100112, end: 20100112
  2. PROPOFOL [Suspect]
     Route: 042
     Dates: start: 20100112, end: 20100112
  3. ATRACURIUM HOSPIRA [Suspect]
     Route: 042
     Dates: start: 20100112, end: 20100112
  4. SUFENTA PRESERVATIVE FREE [Suspect]
     Route: 042
     Dates: start: 20100112, end: 20100112
  5. NORMACOL [Suspect]
     Route: 054
     Dates: start: 20100111, end: 20100111
  6. DEXAMETHASONE [Suspect]
     Route: 042
     Dates: start: 20100112, end: 20100112
  7. ACUPAN [Suspect]
     Route: 042
     Dates: start: 20100112, end: 20100112
  8. BETADINE DERMAL [Suspect]
     Route: 003
     Dates: start: 20100111, end: 20100112
  9. BETADINE DERMAL [Suspect]
     Route: 067
     Dates: start: 20100112, end: 20100112
  10. DROPERIDOL [Suspect]
     Route: 042
     Dates: start: 20100112, end: 20100112
  11. LOVENOX [Suspect]
     Dosage: 0.4 ML, 1 DF.
     Route: 042
     Dates: start: 20100111, end: 20100112
  12. MIDAZOLAM HCL [Suspect]
     Route: 042
     Dates: start: 20100112, end: 20100112
  13. AUGMENTIN '125' [Suspect]
     Dosage: 3 G + 300 MG.
     Route: 042
     Dates: start: 20100112, end: 20100112
  14. SUPRANE [Suspect]
     Route: 055
     Dates: start: 20100112, end: 20100112
  15. ATROPINE [Suspect]
     Route: 042
     Dates: start: 20100112, end: 20100112
  16. NEOSTIGMINE [Suspect]
     Route: 042
     Dates: start: 20100112, end: 20100112
  17. MOPRAL [Concomitant]
  18. DOLIPRANE [Concomitant]
  19. PROFENID [Concomitant]
     Dosage: STOPPED SEVERAL BEFORE SURGERY.
  20. EXACYL [Concomitant]
  21. NEURONTIN [Concomitant]
     Dosage: 900 MG THE DAY BEFORE THE SURGERY, 300 MG BEFORE THE SURGERY.
     Dates: start: 20100112
  22. NEURONTIN [Concomitant]
     Dates: start: 20100116, end: 20100116
  23. NEURONTIN [Concomitant]
     Dates: end: 20100119
  24. PERFALGAN [Concomitant]
     Dates: start: 20100113, end: 20100118

REACTIONS (3)
  - HAEMATURIA [None]
  - OLIGURIA [None]
  - RENAL FAILURE ACUTE [None]
